FAERS Safety Report 6507133-4 (Version None)
Quarter: 2009Q4

REPORT INFORMATION
  Report Type: 
  Country: None (occurrence: None)
  Receive Date: 20091221
  Receipt Date: 20091210
  Transmission Date: 20100525
  Serious: Yes (Other)
  Sender: FDA-Public Use
  Company Number: PHHY2009FR54799

PATIENT
  Age: 80 Year
  Sex: Female

DRUGS (3)
  1. EXELON [Suspect]
     Indication: DEMENTIA ALZHEIMER'S TYPE
     Dosage: 4.6 MG/24 HRS
     Route: 062
  2. EXELON [Suspect]
     Dosage: 9.5 MG/24 HRS
     Route: 062
     Dates: start: 20091022
  3. TENORDATE [Suspect]

REACTIONS (2)
  - CHOLESTASIS [None]
  - JAUNDICE [None]
